FAERS Safety Report 16647086 (Version 5)
Quarter: 2019Q4

REPORT INFORMATION
  Report Type: Report from Study
  Country: US (occurrence: US)
  Receive Date: 20190730
  Receipt Date: 20191010
  Transmission Date: 20200122
  Serious: Yes (Death, Hospitalization)
  Sender: FDA-Public Use
  Company Number: US-ROCHE-2349152

PATIENT
  Age: 65 Year
  Sex: Male
  Weight: 86 kg

DRUGS (27)
  1. ATORVASTATIN [Concomitant]
     Active Substance: ATORVASTATIN
     Route: 048
     Dates: start: 1995
  2. HYDROCODONE [Concomitant]
     Active Substance: HYDROCODONE
  3. POTASSIUM GLUCONATE [Concomitant]
     Active Substance: POTASSIUM GLUCONATE
  4. TAMSULOSIN [Concomitant]
     Active Substance: TAMSULOSIN
  5. VERAPAMIL [Concomitant]
     Active Substance: VERAPAMIL HYDROCHLORIDE
  6. ATEZOLIZUMAB. [Suspect]
     Active Substance: ATEZOLIZUMAB
     Indication: SMALL CELL LUNG CANCER EXTENSIVE STAGE
     Dosage: ON DAY 1 OF EACH 21-DAY CYCLE, ONGOING
     Route: 042
     Dates: start: 20180207
  7. ROBAXIN [Concomitant]
     Active Substance: METHOCARBAMOL
  8. CLOPIDOGREL [Concomitant]
     Active Substance: CLOPIDOGREL BISULFATE
     Route: 048
     Dates: start: 1995
  9. COENZYME Q10 [Concomitant]
     Active Substance: UBIDECARENONE
     Route: 048
     Dates: start: 1995
  10. METFORMIN [Concomitant]
     Active Substance: METFORMIN HYDROCHLORIDE
     Route: 065
  11. ATEZOLIZUMAB. [Suspect]
     Active Substance: ATEZOLIZUMAB
     Route: 041
     Dates: start: 20190612, end: 20190612
  12. BLINDED TRILACICLIB [Suspect]
     Active Substance: TRILACICLIB
     Indication: BONE MARROW FAILURE
     Dosage: ONGOING
     Route: 065
     Dates: start: 20180207
  13. BLINDED TRILACICLIB [Suspect]
     Active Substance: TRILACICLIB
     Dosage: ONGOING
     Route: 065
     Dates: start: 20180426, end: 20180426
  14. IBUPROFEN. [Concomitant]
     Active Substance: IBUPROFEN
  15. ZOMIG [Concomitant]
     Active Substance: ZOLMITRIPTAN
  16. ETOPOSIDE PHOSPHATE [Suspect]
     Active Substance: ETOPOSIDE PHOSPHATE
     Indication: SMALL CELL LUNG CANCER EXTENSIVE STAGE
     Route: 042
     Dates: start: 20180426, end: 20180426
  17. DILAUDID [Concomitant]
     Active Substance: HYDROMORPHONE HYDROCHLORIDE
     Route: 048
     Dates: start: 20190412
  18. FOSAPREPITANT [Concomitant]
     Active Substance: FOSAPREPITANT
     Route: 042
     Dates: start: 20180207
  19. HYDROCODONE [Concomitant]
     Active Substance: HYDROCODONE
     Route: 048
     Dates: start: 20190516
  20. VITAMIN D3 [Concomitant]
     Active Substance: CHOLECALCIFEROL
  21. CARBOPLATIN. [Suspect]
     Active Substance: CARBOPLATIN
     Dosage: CYCLICAL (AUC 5), ONGOING
     Route: 042
     Dates: start: 20180424, end: 20180424
  22. DEXAMETHASONE. [Concomitant]
     Active Substance: DEXAMETHASONE
     Route: 042
     Dates: start: 20180207
  23. AUGMENTIN [Concomitant]
     Active Substance: AMOXICILLIN\CLAVULANATE POTASSIUM
     Route: 048
     Dates: start: 20190207
  24. OMEPRAZOLE. [Concomitant]
     Active Substance: OMEPRAZOLE
  25. CARBOPLATIN. [Suspect]
     Active Substance: CARBOPLATIN
     Indication: SMALL CELL LUNG CANCER EXTENSIVE STAGE
     Dosage: CYCLICAL (AUC 5), ONGOING
     Route: 065
     Dates: start: 20180207
  26. ACETAMINOPHEN. [Concomitant]
     Active Substance: ACETAMINOPHEN
     Route: 065
     Dates: start: 2015
  27. LASIX [Concomitant]
     Active Substance: FUROSEMIDE

REACTIONS (1)
  - Meningoencephalitis herpetic [Fatal]

NARRATIVE: CASE EVENT DATE: 20190627
